FAERS Safety Report 7410630-0 (Version None)
Quarter: 2011Q1

REPORT INFORMATION
  Report Type: 
  Country: None (occurrence: None)
  Receive Date: 20110302
  Receipt Date: 20110119
  Transmission Date: 20110831
  Serious: No
  Sender: FDA-Public Use
  Company Number: 025782

PATIENT
  Sex: Female
  Weight: 52.2 kg

DRUGS (4)
  1. VITAMIN B12 AMINO [Concomitant]
  2. MULTIPLE VITAMINS [Concomitant]
  3. CIMZIA [Suspect]
     Indication: CROHN'S DISEASE
     Dosage: 400 MG 1X/MONTH SUBCUTANEOUS
     Route: 058
     Dates: start: 20100101
  4. CAPADEX [Concomitant]

REACTIONS (6)
  - FATIGUE [None]
  - WEIGHT GAIN POOR [None]
  - UPPER RESPIRATORY TRACT INFECTION [None]
  - THROAT IRRITATION [None]
  - COUGH [None]
  - INCREASED UPPER AIRWAY SECRETION [None]
